FAERS Safety Report 4684075-0 (Version None)
Quarter: 2005Q2

REPORT INFORMATION
  Report Type: 
  Country: None (occurrence: None)
  Receive Date: 20050607
  Receipt Date: 20050602
  Transmission Date: 20051028
  Serious: Yes (Hospitalization)
  Sender: FDA-Public Use
  Company Number: PHBS2005SE07864

PATIENT
  Age: 52 Year
  Sex: Male

DRUGS (4)
  1. PLENDIL [Concomitant]
  2. TENORMIN [Concomitant]
  3. DURAGESIC-100 [Concomitant]
  4. GLEEVEC [Suspect]
     Indication: GASTROINTESTINAL STROMAL TUMOUR
     Dosage: 300 MG/DAY
     Route: 048

REACTIONS (5)
  - DIZZINESS [None]
  - HEART RATE INCREASED [None]
  - PALPITATIONS [None]
  - SLEEP DISORDER [None]
  - SYNCOPE [None]
